FAERS Safety Report 22631767 (Version 3)
Quarter: 2025Q3

REPORT INFORMATION
  Report Type: Report from Study
  Country: IN (occurrence: IN)
  Receive Date: 20230623
  Receipt Date: 20250715
  Transmission Date: 20251020
  Serious: Yes (Hospitalization)
  Sender: NOVARTIS
  Company Number: IN-002147023-NVSC2023IN139311

PATIENT
  Age: 29 Year
  Sex: Male

DRUGS (5)
  1. SIMULECT [Suspect]
     Active Substance: BASILIXIMAB
     Indication: Renal transplant
     Route: 042
     Dates: start: 20230426
  2. SIMULECT [Suspect]
     Active Substance: BASILIXIMAB
     Route: 065
     Dates: start: 20230430
  3. Citol [Concomitant]
     Indication: Product used for unknown indication
     Route: 048
     Dates: start: 20230607
  4. Tacroren [Concomitant]
     Indication: Product used for unknown indication
     Route: 048
     Dates: start: 20230424
  5. Immutil s [Concomitant]
     Indication: Product used for unknown indication
     Route: 048
     Dates: start: 20230424

REACTIONS (8)
  - Kidney transplant rejection [Not Recovered/Not Resolved]
  - Renal tubular injury [Unknown]
  - Tubulointerstitial nephritis [Unknown]
  - Renal tubular atrophy [Unknown]
  - Kidney fibrosis [Unknown]
  - Endothelial dysfunction [Unknown]
  - Dyspnoea [Recovered/Resolved]
  - Toxicity to various agents [Unknown]

NARRATIVE: CASE EVENT DATE: 20230526
